FAERS Safety Report 4830941-2 (Version None)
Quarter: 2005Q4

REPORT INFORMATION
  Report Type: 
  Country: None (occurrence: None)
  Receive Date: 20051114
  Receipt Date: 20051102
  Transmission Date: 20060501
  Serious: Yes (Other)
  Sender: FDA-Public Use
  Company Number: 2005151426

PATIENT
  Age: 10 Year
  Sex: Male

DRUGS (1)
  1. GENOTROPIN [Suspect]
     Indication: HYPOPITUITARISM
     Dosage: 12 I.U. (WEEKLY), SUBCUTANEOUS
     Route: 058
     Dates: start: 19940927

REACTIONS (2)
  - ARNOLD-CHIARI MALFORMATION [None]
  - SYRINGOMYELIA [None]
